FAERS Safety Report 8107709-7 (Version None)
Quarter: 2012Q1

REPORT INFORMATION
  Report Type: 
  Country: None (occurrence: None)
  Receive Date: 20120202
  Receipt Date: 20120125
  Transmission Date: 20120608
  Serious: Yes (Hospitalization)
  Sender: FDA-Public Use
  Company Number: US-JNJFOC-20120111759

PATIENT
  Sex: Male

DRUGS (8)
  1. RISPERDAL CONSTA [Suspect]
     Indication: BIPOLAR DISORDER
     Route: 030
     Dates: start: 20111029, end: 20111209
  2. ABILIFY [Suspect]
     Indication: BIPOLAR DISORDER
     Route: 065
  3. CELEXA [Concomitant]
     Indication: BIPOLAR DISORDER
     Route: 048
  4. RISPERIDONE [Suspect]
     Indication: BIPOLAR DISORDER
     Route: 048
  5. INVEGA SUSTENNA [Suspect]
     Indication: BIPOLAR DISORDER
     Route: 030
     Dates: start: 20120101, end: 20120101
  6. RISPERDAL CONSTA [Suspect]
     Route: 030
     Dates: start: 20100501, end: 20110801
  7. EQUETRO [Concomitant]
     Indication: BIPOLAR DISORDER
  8. TRILEPTAL [Concomitant]
     Indication: BIPOLAR DISORDER
     Route: 048

REACTIONS (7)
  - PSYCHOTIC DISORDER [None]
  - INFECTIOUS MONONUCLEOSIS [None]
  - FEELING ABNORMAL [None]
  - CONDITION AGGRAVATED [None]
  - GASTROOESOPHAGEAL REFLUX DISEASE [None]
  - ULCER [None]
  - HYPOTHYROIDISM [None]
